FAERS Safety Report 6900474-8 (Version None)
Quarter: 2010Q3

REPORT INFORMATION
  Report Type: 
  Country: None (occurrence: None)
  Receive Date: 20100803
  Receipt Date: 20100722
  Transmission Date: 20110219
  Serious: Yes (Life-Threatening)
  Sender: FDA-Public Use
  Company Number: FR-PFIZER INC-2010092341

PATIENT
  Age: 78 Year
  Sex: Male

DRUGS (14)
  1. LYRICA [Suspect]
     Indication: ARTERITIS
     Dosage: 75 MG, 1X/DAY
     Route: 048
     Dates: start: 20100201
  2. SERESTA [Interacting]
     Indication: DELIRIUM TREMENS
     Dosage: 50 MG, SINGLE
     Route: 048
     Dates: start: 20100707, end: 20100707
  3. TAHOR [Concomitant]
  4. PLAVIX [Concomitant]
  5. CORVASAL [Concomitant]
  6. CORDARONE [Concomitant]
  7. COAPROVEL [Concomitant]
  8. GLUCOR [Concomitant]
  9. CITALOPRAM HYDROBROMIDE [Concomitant]
  10. CALCIDIA [Concomitant]
  11. AUGMENTIN '125' [Concomitant]
  12. PARACETAMOL [Concomitant]
  13. VITAMIN B1 AND B6 [Concomitant]
  14. LOVENOX [Concomitant]

REACTIONS (2)
  - COMA [None]
  - DRUG INTERACTION [None]
